FAERS Safety Report 8067742-0 (Version None)
Quarter: 2012Q1

REPORT INFORMATION
  Report Type: 
  Country: None (occurrence: None)
  Receive Date: 20120124
  Receipt Date: 20120109
  Transmission Date: 20120608
  Serious: Yes (Other)
  Sender: FDA-Public Use
  Company Number: US-JNJFOC-20120103573

PATIENT
  Age: 16 Year
  Sex: Female
  Weight: 73.48 kg

DRUGS (1)
  1. NEOSPORIN ECZEMA ESSENTIALS DAILY MOISTURIZING CREAM [Suspect]
     Indication: ECZEMA
     Route: 061
     Dates: start: 20120107, end: 20120109

REACTIONS (5)
  - EYE SWELLING [None]
  - ABNORMAL SENSATION IN EYE [None]
  - SWELLING FACE [None]
  - DERMATITIS [None]
  - ERYTHEMA [None]
